FAERS Safety Report 6076211-9 (Version None)
Quarter: 2009Q1

REPORT INFORMATION
  Report Type: 
  Country: None (occurrence: None)
  Receive Date: 20090212
  Receipt Date: 20081218
  Transmission Date: 20090719
  Serious: Yes (Other)
  Sender: FDA-Public Use
  Company Number: US-PFIZER INC-2008159345

PATIENT
  Sex: Male

DRUGS (1)
  1. GABAPENTIN [Suspect]

REACTIONS (1)
  - NERVOUS SYSTEM DISORDER [None]
